FAERS Safety Report 15863877 (Version 2)
Quarter: 2019Q1

REPORT INFORMATION
  Report Type: Spontaneous
  Country: GB (occurrence: GB)
  Receive Date: 20190124
  Receipt Date: 20190131
  Transmission Date: 20190417
  Serious: Yes (Other)
  Sender: FDA-Public Use
  Company Number: GB-MYLANLABS-2019M1005735

PATIENT
  Age: 79 Year
  Sex: Male

DRUGS (5)
  1. AMITRIPTYLINE [Suspect]
     Active Substance: AMITRIPTYLINE
     Indication: PRODUCT USED FOR UNKNOWN INDICATION
     Dosage: UNK
  2. OMEPRAZOLE. [Suspect]
     Active Substance: OMEPRAZOLE
     Indication: PRODUCT USED FOR UNKNOWN INDICATION
     Dosage: UNK
     Route: 048
  3. HYDROCORTISONE. [Concomitant]
     Active Substance: HYDROCORTISONE
     Dosage: UNK
     Route: 042
  4. DESMOPRESSIN [Suspect]
     Active Substance: DESMOPRESSIN
     Indication: PROPHYLAXIS
     Dosage: UNK
  5. DULOXETINE. [Suspect]
     Active Substance: DULOXETINE
     Indication: PROPHYLAXIS
     Dosage: UNK

REACTIONS (1)
  - Inappropriate antidiuretic hormone secretion [Unknown]
